FAERS Safety Report 20708694 (Version 5)
Quarter: 2022Q2

REPORT INFORMATION
  Report Type: Spontaneous
  Country: CA (occurrence: CA)
  Receive Date: 20220414
  Receipt Date: 20220621
  Transmission Date: 20220720
  Serious: Yes (Hospitalization, Other)
  Sender: FDA-Public Use
  Company Number: CA-CELLTRION INC.-2021CA016738

PATIENT

DRUGS (13)
  1. INFLECTRA [Suspect]
     Active Substance: INFLIXIMAB-DYYB
     Indication: Colitis ulcerative
     Dosage: 5 MG/KG, INDUCTION DOSES AT WEEK 0, 2 AND 6, THEN EVERY 8 WEEKS, ROUNDED TO NEAREST VIAL
     Route: 042
     Dates: start: 20210809
  2. INFLECTRA [Suspect]
     Active Substance: INFLIXIMAB-DYYB
     Dosage: 5 MG/KG (295 MG), INDUCTION DOSES AT WEEK 0, 2 AND 6, THEN EVERY 8 WEEKS
     Route: 042
     Dates: start: 20210823
  3. INFLECTRA [Suspect]
     Active Substance: INFLIXIMAB-DYYB
     Dosage: 300 MG, INDUCTION DOSES AT WEEK 0, 2 AND 6, THEN EVERY 8 WEEKS
     Route: 042
     Dates: start: 20210921
  4. INFLECTRA [Suspect]
     Active Substance: INFLIXIMAB-DYYB
     Dosage: 300 MG, INDUCTION DOSES AT WEEK 0, 2 AND 6, THEN EVERY 8 WEEKS
     Route: 042
     Dates: start: 20211116
  5. INFLECTRA [Suspect]
     Active Substance: INFLIXIMAB-DYYB
     Dosage: 10 MG/KG, EVERY 4 WEEK
     Route: 042
     Dates: start: 20211215
  6. INFLECTRA [Suspect]
     Active Substance: INFLIXIMAB-DYYB
     Dosage: 10 MG/KG, EVERY 4 WEEK
     Route: 042
     Dates: start: 20220112
  7. INFLECTRA [Suspect]
     Active Substance: INFLIXIMAB-DYYB
     Dosage: 10 MG/KG,  EVERY 4 WEEK
     Route: 042
     Dates: start: 20220209
  8. INFLECTRA [Suspect]
     Active Substance: INFLIXIMAB-DYYB
     Dosage: 10 MG/KG,  EVERY 4 WEEK
     Route: 042
     Dates: start: 20220309
  9. INFLECTRA [Suspect]
     Active Substance: INFLIXIMAB-DYYB
     Dosage: 10 MG/KG,  EVERY 4 WEEK
     Route: 042
     Dates: start: 20220405
  10. INFLECTRA [Suspect]
     Active Substance: INFLIXIMAB-DYYB
     Dosage: 10 MG/KG,  EVERY 4 WEEK
     Route: 042
     Dates: start: 20220504
  11. MESALAMINE [Concomitant]
     Active Substance: MESALAMINE
     Dosage: 1 DF
     Route: 065
  12. ONDANSETRON [Concomitant]
     Active Substance: ONDANSETRON
     Dosage: 1 DF, DOSAGE NOT AVAILABLE
     Route: 065
  13. PREDNISONE [Concomitant]
     Active Substance: PREDNISONE
     Dosage: 1 DF
     Route: 065

REACTIONS (20)
  - Colitis ulcerative [Unknown]
  - Drug level decreased [Recovering/Resolving]
  - Drug specific antibody present [Unknown]
  - Off label use [Unknown]
  - Off label use [Unknown]
  - Incorrect dose administered [Unknown]
  - Weight increased [Unknown]
  - Condition aggravated [Not Recovered/Not Resolved]
  - Haemoglobin decreased [Unknown]
  - Mean cell volume decreased [Unknown]
  - Mean cell haemoglobin decreased [Unknown]
  - Mean cell haemoglobin concentration decreased [Unknown]
  - C-reactive protein increased [Unknown]
  - Red cell distribution width increased [Unknown]
  - Neutrophil count decreased [Unknown]
  - Serum ferritin decreased [Unknown]
  - Vitamin D decreased [Unknown]
  - Blood creatinine decreased [Unknown]
  - Drug level above therapeutic [Unknown]
  - Pain [Unknown]

NARRATIVE: CASE EVENT DATE: 20210101
